FAERS Safety Report 4990404-0 (Version None)
Quarter: 2006Q2

REPORT INFORMATION
  Report Type: 
  Country: None (occurrence: None)
  Receive Date: 20060427
  Receipt Date: 20060426
  Transmission Date: 20061013
  Serious: Yes (Other)
  Sender: FDA-Public Use
  Company Number: HQWYE871419APR06

PATIENT
  Age: 60 Year
  Sex: Male

DRUGS (6)
  1. EFFEXOR [Suspect]
     Indication: MAJOR DEPRESSION
     Dosage: SEE IMAGE
  2. OMEPRAZOLE [Concomitant]
  3. IRBESARTAN [Concomitant]
  4. ESCITALOPRAM (ESCITALOPRAM,) [Suspect]
     Indication: MAJOR DEPRESSION
     Dosage: SEE IMAGE
  5. MIRTAZAPINE [Suspect]
     Indication: MAJOR DEPRESSION
     Dosage: SEE IMAGE
  6. MIRTAZAPINE [Suspect]
     Indication: MAJOR DEPRESSION
     Dosage: SEE IMAGE

REACTIONS (5)
  - DRUG INTERACTION [None]
  - EPISTAXIS [None]
  - PLATELET AGGREGATION ABNORMAL [None]
  - RECTAL HAEMORRHAGE [None]
  - SERUM SEROTONIN INCREASED [None]
